FAERS Safety Report 6589978-8 (Version None)
Quarter: 2010Q1

REPORT INFORMATION
  Report Type: 
  Country: None (occurrence: None)
  Receive Date: 20100219
  Receipt Date: 20100208
  Transmission Date: 20100710
  Serious: Yes (Other)
  Sender: FDA-Public Use
  Company Number: PHHY2009JP48974

PATIENT
  Sex: Male

DRUGS (2)
  1. GLEEVEC [Suspect]
     Indication: CHRONIC MYELOID LEUKAEMIA
     Dosage: UNK
     Route: 048
     Dates: end: 20091001
  2. GLEEVEC [Suspect]
     Dosage: UNK
     Route: 048
     Dates: end: 20091101

REACTIONS (9)
  - ABDOMINAL PAIN [None]
  - ASTHENIA [None]
  - COLOSTOMY [None]
  - DEPRESSED MOOD [None]
  - FEELING ABNORMAL [None]
  - FREQUENT BOWEL MOVEMENTS [None]
  - GASTROINTESTINAL DISORDER [None]
  - NAUSEA [None]
  - PERIPHERAL COLDNESS [None]
